FAERS Safety Report 23824776 (Version 2)
Quarter: 2024Q2

REPORT INFORMATION
  Report Type: Spontaneous
  Country: US (occurrence: US)
  Receive Date: 20240507
  Receipt Date: 20240606
  Transmission Date: 20240716
  Serious: No
  Sender: FDA-Public Use
  Company Number: US-BRISTOL-MYERS SQUIBB COMPANY-2024-070348

PATIENT
  Age: 64 Year
  Sex: Female

DRUGS (2)
  1. ORENCIA [Suspect]
     Active Substance: ABATACEPT
     Indication: Rheumatoid arthritis
     Route: 058
     Dates: start: 202201
  2. ORENCIA [Suspect]
     Active Substance: ABATACEPT
     Route: 058
     Dates: start: 202201

REACTIONS (6)
  - Therapy non-responder [Unknown]
  - Neck injury [Unknown]
  - Limb injury [Unknown]
  - Chills [Unknown]
  - Musculoskeletal stiffness [Unknown]
  - Myalgia [Unknown]

NARRATIVE: CASE EVENT DATE: 20240601
